FAERS Safety Report 8739816 (Version 6)
Quarter: 2013Q3

REPORT INFORMATION
  Report Type: Report from Study
  Country: CA (occurrence: CA)
  Receive Date: 20120823
  Receipt Date: 20130822
  Transmission Date: 20140515
  Serious: Yes (Hospitalization, Other)
  Sender: FDA-Public Use
  Company Number: CA-ROCHE-1103842

PATIENT
  Age: 68 Year
  Sex: Male
  Weight: 71 kg

DRUGS (24)
  1. RITUXAN [Suspect]
     Indication: RHEUMATOID ARTHRITIS
     Route: 042
     Dates: start: 20071011
  2. RITUXAN [Suspect]
     Route: 042
     Dates: start: 20090929, end: 20120719
  3. ACTEMRA [Suspect]
     Indication: RHEUMATOID ARTHRITIS
     Route: 042
     Dates: start: 20130528, end: 20130528
  4. PREDNISONE [Concomitant]
  5. FOLIC ACID [Concomitant]
  6. PREDNISONE [Concomitant]
  7. DILTIAZEM HCL [Concomitant]
  8. EZETROL [Concomitant]
  9. HCTZ [Concomitant]
  10. RAMIPRIL [Concomitant]
  11. ATENOL [Concomitant]
  12. SYNTHROID [Concomitant]
  13. SALMON OIL [Concomitant]
  14. ASA [Concomitant]
  15. MORPHINE [Concomitant]
  16. FENTANYL [Concomitant]
  17. DIPHENHYDRAMINE HCL [Concomitant]
     Indication: PREMEDICATION
     Route: 048
     Dates: start: 20081105, end: 20120719
  18. ACETAMINOPHEN [Concomitant]
     Indication: PREMEDICATION
     Route: 048
     Dates: start: 20081105, end: 20120719
  19. METHYLPREDNISOLONE [Concomitant]
     Indication: PREMEDICATION
     Route: 042
     Dates: start: 20081105, end: 20120719
  20. TAMSULOSIN [Concomitant]
  21. PRAVASTATIN [Concomitant]
  22. WARFARIN [Concomitant]
     Route: 065
  23. LEVOTHYROXINE [Concomitant]
     Route: 065
  24. TERAZOSIN [Concomitant]
     Route: 065

REACTIONS (18)
  - White blood cell count decreased [Recovering/Resolving]
  - Platelet count decreased [Unknown]
  - Hepatic function abnormal [Unknown]
  - Infection [Unknown]
  - Eye swelling [Recovered/Resolved]
  - Mental status changes [Recovered/Resolved]
  - Suicidal ideation [Recovered/Resolved]
  - Erythema [Recovered/Resolved]
  - Burning sensation [Recovered/Resolved]
  - Stent placement [Unknown]
  - Thrombosis [Unknown]
  - Hypersensitivity [Recovered/Resolved]
  - Nasopharyngitis [Not Recovered/Not Resolved]
  - Chills [Not Recovered/Not Resolved]
  - Malaise [Not Recovered/Not Resolved]
  - Arthralgia [Not Recovered/Not Resolved]
  - Localised infection [Recovered/Resolved]
  - Lower respiratory tract infection [Not Recovered/Not Resolved]
